FAERS Safety Report 9201061 (Version 1)
Quarter: 2013Q2

REPORT INFORMATION
  Report Type: Spontaneous
  Country: US (occurrence: US)
  Receive Date: 20130401
  Receipt Date: 20130401
  Transmission Date: 20140414
  Serious: No
  Sender: FDA-Public Use
  Company Number: US-BAYER-2013-029986

PATIENT
  Sex: Female

DRUGS (6)
  1. CIPRO [Suspect]
     Indication: ATROPHIC VULVOVAGINITIS
  2. ESTRADIOL [ESTRADIOL] [Concomitant]
     Indication: ATROPHIC VULVOVAGINITIS
     Dosage: 1 G, PRN
     Dates: start: 2000
  3. MACROBID [Concomitant]
     Dosage: UNK
     Route: 048
     Dates: start: 201209, end: 20130131
  4. METOPROLOL [Concomitant]
  5. ASPIRIN (E.C.) [ACETYLSALICYLIC ACID] [Concomitant]
  6. ALMVASTATIN [Concomitant]

REACTIONS (1)
  - Drug ineffective [None]
